FAERS Safety Report 5777505-4 (Version None)
Quarter: 2008Q2

REPORT INFORMATION
  Report Type: 
  Country: None (occurrence: None)
  Receive Date: 20080618
  Receipt Date: 20080606
  Transmission Date: 20081010
  Serious: Yes (Death)
  Sender: FDA-Public Use
  Company Number: FR-ROCHE-569447

PATIENT
  Sex: Male

DRUGS (8)
  1. VALIUM [Suspect]
     Indication: DRUG USE FOR UNKNOWN INDICATION
     Dosage: DRUG NAME: VALIUM 10 ROCHE.
     Route: 048
     Dates: start: 20080218, end: 20080319
  2. DEPAKENE [Suspect]
     Indication: DRUG USE FOR UNKNOWN INDICATION
     Route: 048
     Dates: start: 20080118, end: 20080319
  3. DEPAKENE [Suspect]
     Route: 048
     Dates: start: 20080118, end: 20080319
  4. TERCIAN [Suspect]
     Indication: DRUG USE FOR UNKNOWN INDICATION
     Route: 065
  5. NOCTRAN 10 [Suspect]
     Indication: DRUG USE FOR UNKNOWN INDICATION
     Route: 048
     Dates: start: 20080304, end: 20080318
  6. NOCTRAN 10 [Suspect]
     Route: 048
     Dates: start: 20080304, end: 20080318
  7. NOCTRAN 10 [Suspect]
     Route: 048
     Dates: start: 20080304, end: 20080318
  8. METHADONE HCL [Suspect]
     Indication: DRUG USE FOR UNKNOWN INDICATION
     Dosage: IN THE MORNING
     Route: 048
     Dates: start: 20080318, end: 20080319

REACTIONS (2)
  - ARRHYTHMIA [None]
  - MYOCARDIAL INFARCTION [None]
